FAERS Safety Report 12656580 (Version 1)
Quarter: 2016Q3

REPORT INFORMATION
  Report Type: Spontaneous
  Country: DE (occurrence: SE)
  Receive Date: 20160816
  Receipt Date: 20160816
  Transmission Date: 20161109
  Serious: Yes (Other)
  Sender: FDA-Public Use
  Company Number: SE-MERZ NORTH AMERICA, INC.-16MRZ-00496

PATIENT
  Age: 61 Year
  Sex: Female

DRUGS (2)
  1. ASCLERA [Suspect]
     Active Substance: POLIDOCANOL
     Indication: VARICOSE VEIN
     Dosage: 2ML TO THE BILATERAL LOWER LEG
     Route: 042
     Dates: start: 20160302, end: 20160302
  2. ASCLERA [Suspect]
     Active Substance: POLIDOCANOL
     Indication: VARICOSE VEIN
     Dosage: 2ML TO THE BILATERAL TIBIAL BONE
     Route: 042
     Dates: start: 20160302, end: 20160302

REACTIONS (3)
  - Peripheral swelling [Recovered/Resolved]
  - Deep vein thrombosis [Recovered/Resolved]
  - Limb discomfort [Recovered/Resolved]
